FAERS Safety Report 8180975-8 (Version None)
Quarter: 2012Q1

REPORT INFORMATION
  Report Type: 
  Country: None (occurrence: None)
  Receive Date: 20120302
  Receipt Date: 20120223
  Transmission Date: 20120608
  Serious: Yes (Life-Threatening, Hospitalization)
  Sender: FDA-Public Use
  Company Number: FR-UCBSA-051156

PATIENT
  Age: 53 Year
  Sex: Female
  Weight: 78 kg

DRUGS (2)
  1. KEPPRA [Suspect]
     Route: 048
     Dates: end: 20120101
  2. KEPPRA [Suspect]
     Indication: EPILEPSY
     Route: 048
     Dates: start: 20091001

REACTIONS (5)
  - HYPERAMMONAEMIA [None]
  - PROTHROMBIN TIME RATIO DECREASED [None]
  - COGNITIVE DISORDER [None]
  - COMA [None]
  - PSYCHOMOTOR RETARDATION [None]
